FAERS Safety Report 5385193-4 (Version None)
Quarter: 2007Q3

REPORT INFORMATION
  Report Type: 
  Country: None (occurrence: None)
  Receive Date: 20070712
  Receipt Date: 20070702
  Transmission Date: 20080115
  Serious: Yes (Other)
  Sender: FDA-Public Use
  Company Number: US-JNJFOC-20070700835

PATIENT
  Sex: Female
  Weight: 54.43 kg

DRUGS (5)
  1. DURAGESIC-100 [Suspect]
     Indication: PAIN
     Route: 062
  2. PROPANOL [Concomitant]
     Indication: PAIN
     Route: 048
  3. GABAPENTIN [Concomitant]
     Indication: SLEEP APNOEA SYNDROME
     Route: 048
  4. ZOLOFT [Concomitant]
     Indication: DEPRESSION
     Route: 048
  5. VICODIN ES [Concomitant]
     Indication: PAIN
     Dosage: 7.5MG/750MG
     Route: 048

REACTIONS (9)
  - ALOPECIA [None]
  - HYPOAESTHESIA [None]
  - MUSCLE SPASMS [None]
  - NAUSEA [None]
  - NERVE COMPRESSION [None]
  - STOMATITIS [None]
  - THROMBOSIS [None]
  - TOOTH EXTRACTION [None]
  - WRONG TECHNIQUE IN DRUG USAGE PROCESS [None]
